FAERS Safety Report 9468914 (Version 2)
Quarter: 2014Q1

REPORT INFORMATION
  Report Type: Spontaneous
  Country: BR (occurrence: BR)
  Receive Date: 20130821
  Receipt Date: 20140113
  Transmission Date: 20141002
  Serious: Yes (Death, Hospitalization, Other)
  Sender: FDA-Public Use
  Company Number: BR-ELI_LILLY_AND_COMPANY-BR201308003713

PATIENT
  Age: 64 Year
  Sex: Female
  Weight: 78 kg

DRUGS (11)
  1. HUMULIN 70N/30R [Suspect]
     Indication: TYPE 2 DIABETES MELLITUS
     Dosage: 40 IU, EACH MORNING
     Route: 058
     Dates: start: 20121007
  2. HUMULIN 70N/30R [Suspect]
     Dosage: 30 IU, EACH EVENING
     Route: 058
     Dates: start: 20121007
  3. HUMULIN 70N/30R [Suspect]
     Dosage: 20 IU, EACH EVENING
     Route: 058
  4. HUMULIN N [Suspect]
     Indication: TYPE 2 DIABETES MELLITUS
     Dosage: 36 IU, EACH MORNING
     Route: 065
     Dates: start: 2003
  5. HUMULIN N [Suspect]
     Dosage: 4 IU, EACH EVENING
     Route: 065
     Dates: start: 2003
  6. METFORMINA [Suspect]
     Indication: HYPERGLYCAEMIA
     Dosage: UNK, UNKNOWN
     Route: 065
  7. LOSARTAN POTASSIUM [Concomitant]
     Indication: HYPERTENSION
     Dosage: UNK, BID
     Route: 065
  8. ATENOLOL [Concomitant]
     Indication: BLOOD PRESSURE
     Dosage: 50 MG, QD
     Route: 065
  9. ISOSORBIDA                         /00586302/ [Concomitant]
     Indication: CARDIAC DISORDER
     Dosage: 40 MG, BID
     Route: 065
  10. GABAPENTINA [Concomitant]
     Indication: DIABETIC NEUROPATHY
     Dosage: 300 MG, QD
     Route: 065
  11. OXCARBAZEPINA [Concomitant]
     Indication: DIABETIC NEUROPATHY
     Dosage: 200 MG, QD
     Route: 065

REACTIONS (22)
  - Urinary tract infection [Fatal]
  - Headache [Recovered/Resolved]
  - Infrequent bowel movements [Recovered/Resolved]
  - Abdominal pain upper [Recovered/Resolved]
  - Dyspepsia [Recovered/Resolved]
  - Pyrexia [Not Recovered/Not Resolved]
  - Glaucoma [Unknown]
  - Glaucoma [Not Recovered/Not Resolved]
  - Diabetic neuropathy [Unknown]
  - Cerebrovascular accident [Unknown]
  - Pneumonia [Unknown]
  - Sepsis [Unknown]
  - Renal failure [Unknown]
  - Hyperglycaemia [Recovered/Resolved]
  - Visual impairment [Unknown]
  - Gastric disorder [Unknown]
  - Blood sodium decreased [Recovered/Resolved]
  - Urine output increased [Recovered/Resolved]
  - Fear of eating [Unknown]
  - Fear of disease [Unknown]
  - Blood pressure abnormal [Unknown]
  - Hypoglycaemia [Recovered/Resolved]
